FAERS Safety Report 7290578-5 (Version None)
Quarter: 2011Q1

REPORT INFORMATION
  Report Type: 
  Country: None (occurrence: None)
  Receive Date: 20110214
  Receipt Date: 20110209
  Transmission Date: 20110831
  Serious: Yes (Other)
  Sender: FDA-Public Use
  Company Number: US-PFIZER INC-2011029647

PATIENT
  Sex: Female
  Weight: 61.224 kg

DRUGS (6)
  1. MORPHINE [Concomitant]
     Dosage: 15 MG, UNK
  2. NORTRIPTYLINE [Concomitant]
     Dosage: 75 MG, UNK
  3. LOVASTATIN [Concomitant]
     Dosage: 40 MG, UNK
  4. OMEPRAZOLE [Concomitant]
     Dosage: 20 MG, UNK
  5. LORATADINE [Concomitant]
     Dosage: 10 MG, UNK
  6. LYRICA [Suspect]
     Indication: HEADACHE
     Dosage: 50 MG, 1X/DAY
     Route: 048
     Dates: start: 20110113

REACTIONS (2)
  - DIPLOPIA [None]
  - VISION BLURRED [None]
